FAERS Safety Report 20848201 (Version 2)
Quarter: 2022Q2

REPORT INFORMATION
  Report Type: Spontaneous
  Country: US (occurrence: US)
  Receive Date: 20220519
  Receipt Date: 20220628
  Transmission Date: 20220721
  Serious: No
  Sender: FDA-Public Use
  Company Number: US-NOVITIUMPHARMA-2022USNVP00066

PATIENT
  Age: 4 Year
  Sex: Male

DRUGS (7)
  1. LEVOCARNITINE [Suspect]
     Active Substance: LEVOCARNITINE
     Indication: Carnitine deficiency
     Route: 048
  2. EPIDIOLEX [Concomitant]
     Active Substance: CANNABIDIOL
  3. ONFI [Concomitant]
     Active Substance: CLOBAZAM
  4. BANZEL [Concomitant]
     Active Substance: RUFINAMIDE
  5. Zyrtet [Concomitant]
  6. MELATONIN [Concomitant]
     Active Substance: MELATONIN
  7. VALPROIC ACID [Concomitant]
     Active Substance: VALPROIC ACID

REACTIONS (1)
  - Rash [Recovered/Resolved]
